FAERS Safety Report 12286999 (Version 1)
Quarter: 2016Q2

REPORT INFORMATION
  Report Type: Not Available
  Country: None (occurrence: US)
  Receive Date: 20160420
  Receipt Date: 20160420
  Transmission Date: 20160815
  Serious: No
  Sender: FDA-Public Use
  Company Number: US-AKORN-19335

PATIENT
  Age: 85 Year
  Sex: Female

DRUGS (1)
  1. TIMOLOL MALEATE OPHTLAMIC SOLUTION [Suspect]
     Active Substance: TIMOLOL MALEATE

REACTIONS (5)
  - Nightmare [Unknown]
  - Peripheral coldness [Unknown]
  - Insomnia [Unknown]
  - Diarrhoea [Unknown]
  - Muscular weakness [Unknown]
